FAERS Safety Report 16190765 (Version 1)
Quarter: 2019Q2

REPORT INFORMATION
  Report Type: Spontaneous
  Country: HK (occurrence: HK)
  Receive Date: 20190412
  Receipt Date: 20190412
  Transmission Date: 20190711
  Serious: Yes (Life-Threatening, Hospitalization, Other)
  Sender: FDA-Public Use
  Company Number: HK-BAUSCH-BL-2019-010761

PATIENT
  Age: 24 Year
  Sex: Male

DRUGS (6)
  1. PREDNISOLONE. [Suspect]
     Active Substance: PREDNISOLONE
     Indication: DERMATOMYOSITIS
     Route: 048
  2. PREDNISOLONE. [Suspect]
     Active Substance: PREDNISOLONE
     Route: 048
  3. METHOTREXATE. [Concomitant]
     Active Substance: METHOTREXATE
     Indication: DERMATOMYOSITIS
  4. IMMUNOGLOBULIN G [Concomitant]
     Active Substance: HUMAN IMMUNOGLOBULIN G
     Indication: DERMATOMYOSITIS
     Route: 042
  5. TACROLIMUS. [Concomitant]
     Active Substance: TACROLIMUS
     Indication: DERMATOMYOSITIS
  6. MYCOPHENOLATE MOFETIL. [Concomitant]
     Active Substance: MYCOPHENOLATE MOFETIL
     Indication: DERMATOMYOSITIS

REACTIONS (1)
  - Pneumomediastinum [Unknown]
